FAERS Safety Report 19551218 (Version 1)
Quarter: 2021Q3

REPORT INFORMATION
  Report Type: Report from Study
  Country: EG (occurrence: EG)
  Receive Date: 20210715
  Receipt Date: 20210715
  Transmission Date: 20211014
  Serious: Yes (Other)
  Sender: FDA-Public Use
  Company Number: NVSC2021EG155959

PATIENT
  Age: 24 Year
  Sex: Female

DRUGS (2)
  1. GILENYA [Suspect]
     Active Substance: FINGOLIMOD HYDROCHLORIDE
     Indication: MULTIPLE SCLEROSIS
     Dosage: 0.5 MG, QD
     Route: 048
     Dates: start: 20210329, end: 20210502
  2. SELENIUM?ACE [Concomitant]
     Indication: PRODUCT USED FOR UNKNOWN INDICATION
     Dosage: UNK, QD
     Route: 065

REACTIONS (6)
  - Blood bilirubin increased [Recovered/Resolved]
  - Limb discomfort [Not Recovered/Not Resolved]
  - Sensory loss [Not Recovered/Not Resolved]
  - Liver function test increased [Recovering/Resolving]
  - Multiple sclerosis [Not Recovered/Not Resolved]
  - Hepatitis A virus test positive [Recovered/Resolved]

NARRATIVE: CASE EVENT DATE: 20210502
